FAERS Safety Report 5278066-9 (Version None)
Quarter: 2007Q1

REPORT INFORMATION
  Report Type: 
  Country: None (occurrence: None)
  Receive Date: 20070321
  Receipt Date: 20070309
  Transmission Date: 20070707
  Serious: Yes (Death, Hospitalization)
  Sender: FDA-Public Use
  Company Number: 2007RR-06333

PATIENT
  Age: 79 Year
  Sex: Female

DRUGS (8)
  1. DILTIAZEM [Suspect]
     Dosage: 180 MG, QD
  2. SIMVASTATIN [Suspect]
     Dosage: SEE IMAGE
  3. WARFARIN SODIUM [Concomitant]
  4. ISOSORBIDE MONONITRATE (ISOSORBIDE) [Concomitant]
  5. FUROSEMIDE [Concomitant]
  6. PERHEXILINE [Concomitant]
  7. ATENOLOL [Concomitant]
  8. PANTOPRAZOLE [Concomitant]

REACTIONS (4)
  - CARDIAC FAILURE [None]
  - DRUG INTERACTION [None]
  - RENAL FAILURE ACUTE [None]
  - RHABDOMYOLYSIS [None]
